FAERS Safety Report 12962114 (Version 2)
Quarter: 2016Q4

REPORT INFORMATION
  Report Type: Report from Study
  Country: JP (occurrence: JP)
  Receive Date: 20161121
  Receipt Date: 20161227
  Transmission Date: 20170207
  Serious: Yes (Death, Other)
  Sender: FDA-Public Use
  Company Number: JP-GILEAD-2016-0244413

PATIENT
  Age: 60 Year
  Sex: Male

DRUGS (4)
  1. ONBREZ [Concomitant]
     Active Substance: INDACATEROL
     Dosage: UNK
     Dates: start: 20130904
  2. SPIRIVA [Concomitant]
     Active Substance: TIOTROPIUM BROMIDE MONOHYDRATE
     Dosage: UNK
     Dates: start: 20130904
  3. URINORM                            /00227201/ [Concomitant]
  4. AMBRISENTAN [Suspect]
     Active Substance: AMBRISENTAN
     Indication: PRODUCT USED FOR UNKNOWN INDICATION
     Dosage: UNK
     Route: 048
     Dates: start: 20130904

REACTIONS (1)
  - Sudden death [Fatal]
